FAERS Safety Report 14302794 (Version 1)
Quarter: 2017Q4

REPORT INFORMATION
  Report Type: Spontaneous
  Country: US (occurrence: US)
  Receive Date: 20171219
  Receipt Date: 20171219
  Transmission Date: 20180321
  Serious: No
  Sender: FDA-Public Use
  Company Number: US-BAYER-2017-237647

PATIENT
  Age: 18 Month
  Sex: Male
  Weight: 14 kg

DRUGS (1)
  1. MIRALAX [Suspect]
     Active Substance: POLYETHYLENE GLYCOL 3350
     Indication: GASTROINTESTINAL DISORDER
     Dosage: 10-12 MILLILITERS, QD
     Route: 048

REACTIONS (2)
  - Product use issue [Unknown]
  - Dyschezia [Unknown]
